FAERS Safety Report 10855463 (Version 1)
Quarter: 2015Q1

REPORT INFORMATION
  Report Type: Spontaneous
  Country: US (occurrence: None)
  Receive Date: 20150218
  Receipt Date: 20150218
  Transmission Date: 20150721
  Serious: Yes (Life-Threatening, Disabling)
  Sender: FDA-Public Use
  Company Number: None

PATIENT
  Age: 39 Year
  Sex: Male
  Weight: 72.58 kg

DRUGS (7)
  1. SODIUM BICARBONATE. [Suspect]
     Active Substance: SODIUM BICARBONATE
  2. GABAPENTIN. [Suspect]
     Active Substance: GABAPENTIN
     Indication: PAIN
  3. CYMBALTA [Suspect]
     Active Substance: DULOXETINE HYDROCHLORIDE
  4. VALERIAN [Concomitant]
     Active Substance: VALERIAN
  5. MELATONIN [Concomitant]
     Active Substance: MELATONIN
  6. GABAPENTIN. [Suspect]
     Active Substance: GABAPENTIN
     Indication: SURGERY
  7. OMEPRAZOLE. [Suspect]
     Active Substance: OMEPRAZOLE

REACTIONS (4)
  - Underdose [None]
  - Condition aggravated [None]
  - Post-traumatic stress disorder [None]
  - Substance-induced psychotic disorder [None]
